FAERS Safety Report 6261069-5 (Version None)
Quarter: 2009Q3

REPORT INFORMATION
  Report Type: 
  Country: None (occurrence: None)
  Receive Date: 20090709
  Receipt Date: 20090708
  Transmission Date: 20100115
  Serious: Yes (Other)
  Sender: FDA-Public Use
  Company Number: GB-SP-2009-02598

PATIENT
  Age: 84 Year
  Sex: Male

DRUGS (2)
  1. IMMUCYST [Suspect]
     Indication: BLADDER CANCER
     Route: 043
     Dates: start: 20080301, end: 20090101
  2. IMMUCYST [Suspect]
     Route: 043
     Dates: start: 20080301, end: 20090101

REACTIONS (4)
  - LIVER FUNCTION TEST ABNORMAL [None]
  - MICTURITION URGENCY [None]
  - POLLAKIURIA [None]
  - TUBERCULOSIS LIVER [None]
